FAERS Safety Report 4778179-1 (Version None)
Quarter: 2005Q3

REPORT INFORMATION
  Report Type: 
  Country: None (occurrence: None)
  Receive Date: 20050922
  Receipt Date: 20050907
  Transmission Date: 20060218
  Serious: Yes (Hospitalization)
  Sender: FDA-Public Use
  Company Number: 2005PV001708

PATIENT
  Age: 30 Year
  Sex: Female
  Weight: 167.6495 kg

DRUGS (8)
  1. BYETTA [Suspect]
     Indication: DIABETES MELLITUS NON-INSULIN-DEPENDENT
     Dosage: SC
     Route: 058
     Dates: start: 20050816, end: 20050830
  2. LANTUS [Concomitant]
  3. COREG [Concomitant]
  4. LASIX [Concomitant]
  5. ZAROXOLYN [Concomitant]
  6. POTASSIUM [Concomitant]
  7. REGULAR INSULIN [Concomitant]
  8. GLUCOPHAGE [Concomitant]

REACTIONS (11)
  - BLOOD GLUCOSE INCREASED [None]
  - CARDIAC FAILURE CONGESTIVE [None]
  - CARDIOMEGALY [None]
  - CHEST PAIN [None]
  - CONDITION AGGRAVATED [None]
  - DEHYDRATION [None]
  - DYSPNOEA EXERTIONAL [None]
  - GLYCOSYLATED HAEMOGLOBIN INCREASED [None]
  - OEDEMA PERIPHERAL [None]
  - PULMONARY CONGESTION [None]
  - PULMONARY VASCULAR DISORDER [None]
